FAERS Safety Report 5089926-6 (Version None)
Quarter: 2006Q3

REPORT INFORMATION
  Report Type: 
  Country: None (occurrence: None)
  Receive Date: 20060823
  Receipt Date: 20060807
  Transmission Date: 20061208
  Serious: Yes (Death)
  Sender: FDA-Public Use
  Company Number: US200607002964

PATIENT
  Age: 56 Year
  Sex: Male
  Weight: 137.4 kg

DRUGS (12)
  1. CYMBALTA [Suspect]
     Indication: PAIN IN EXTREMITY
     Dates: start: 20050101
  2. LASIX [Concomitant]
  3. POTASSIUM CHLORIDE [Concomitant]
  4. OXYCONTIN [Concomitant]
  5. ALLOPURINOL [Concomitant]
  6. SYNTHROID (LEVOTHRYOXINE SODIUM) [Concomitant]
  7. SLOW-MAG (MAGNESIUM CHLORIDE ANHYDROUS) [Concomitant]
  8. HEPARIN [Concomitant]
  9. LEVATOL (PENBUTOLOL SULFATE) [Concomitant]
  10. PERCODAN (ACETYLSALICYLIC ACID, CAFFEINE, HOMATROPINE TEREPHTHALATE, O [Concomitant]
  11. DURAGESIC-100 [Concomitant]
  12. ZAROXOLYN [Concomitant]

REACTIONS (1)
  - SUDDEN DEATH [None]
